FAERS Safety Report 8591082 (Version 2)
Quarter: 2012Q4

REPORT INFORMATION
  Report Type: 
  Country: US (occurrence: US)
  Receive Date: 20120601
  Receipt Date: 20121203
  Transmission Date: 20130627
  Serious: Yes (Death, Life-Threatening, Other)
  Sender: FDA-Public Use
  Company Number: US-JNJFOC-20120519717

PATIENT
  Age: 68 Year
  Sex: Female

DRUGS (6)
  1. DOXORUBICIN HYDROCHLORIDE (DOXIL) [Suspect]
     Indication: MULTIPLE MYELOMA
     Route: 042
     Dates: start: 20110421
  2. DOXORUBICIN HYDROCHLORIDE (DOXIL) [Suspect]
     Indication: PLASMACYTOMA
     Route: 042
     Dates: start: 20110421
  3. VELCADE [Suspect]
     Indication: MULTIPLE MYELOMA
     Route: 065
     Dates: start: 20110421
  4. VELCADE [Suspect]
     Indication: PLASMACYTOMA
     Route: 065
     Dates: start: 20110421
  5. DEXAMETHASONE SODIUM PHOSPHATE [Suspect]
     Indication: MULTIPLE MYELOMA
     Route: 065
  6. DEXAMETHASONE SODIUM PHOSPHATE [Suspect]
     Indication: PLASMACYTOMA
     Route: 065

REACTIONS (6)
  - Plasma cell myeloma [Fatal]
  - Renal failure chronic [Fatal]
  - Septic shock [Fatal]
  - Mucosal inflammation [Unknown]
  - Periodontitis [Unknown]
  - Mucosal ulceration [None]
